FAERS Safety Report 7064280-9 (Version None)
Quarter: 2010Q4

REPORT INFORMATION
  Report Type: 
  Country: None (occurrence: None)
  Receive Date: 20101027
  Receipt Date: 20101018
  Transmission Date: 20110411
  Serious: Yes (Other)
  Sender: FDA-Public Use
  Company Number: DZ-ASTRAZENECA-2010SE49518

PATIENT
  Age: 14739 Day
  Sex: Male
  Weight: 53 kg

DRUGS (3)
  1. SYMBICORT [Suspect]
     Indication: ASTHMA
     Dosage: 400 UG 1 INHALATION
     Route: 055
     Dates: start: 20100928, end: 20101001
  2. DEPAKENE [Concomitant]
     Route: 065
  3. TEGRETOL [Concomitant]
     Route: 065

REACTIONS (1)
  - EPILEPSY [None]
